FAERS Safety Report 14317212 (Version 5)
Quarter: 2018Q4

REPORT INFORMATION
  Report Type: Report from Study
  Country: DE (occurrence: DE)
  Receive Date: 20171222
  Receipt Date: 20181003
  Transmission Date: 20190204
  Serious: Yes (Hospitalization, Other)
  Sender: FDA-Public Use
  Company Number: DE-JNJFOC-20171223586

PATIENT
  Age: 34 Month
  Sex: Male
  Weight: 12.2 kg

DRUGS (77)
  1. DOXORUBICIN HYDROCHLORIDE. [Suspect]
     Active Substance: DOXORUBICIN HYDROCHLORIDE
     Indication: ACUTE LYMPHOCYTIC LEUKAEMIA
     Route: 042
     Dates: start: 20160310
  2. DAUNORUBICIN [Suspect]
     Active Substance: DAUNORUBICIN
     Indication: PHILADELPHIA CHROMOSOME POSITIVE
     Route: 042
     Dates: start: 20160118, end: 20160119
  3. VINCRISTINE [Suspect]
     Active Substance: VINCRISTINE
     Indication: PHILADELPHIA CHROMOSOME POSITIVE
     Route: 042
     Dates: start: 20151218
  4. VINCRISTINE [Suspect]
     Active Substance: VINCRISTINE
     Indication: PHILADELPHIA CHROMOSOME POSITIVE
     Route: 042
     Dates: start: 20160317
  5. VINCRISTINE [Suspect]
     Active Substance: VINCRISTINE
     Indication: PHILADELPHIA CHROMOSOME POSITIVE
     Route: 042
     Dates: start: 20160712, end: 20160712
  6. VINCRISTINE [Suspect]
     Active Substance: VINCRISTINE
     Indication: PHILADELPHIA CHROMOSOME POSITIVE
     Route: 042
     Dates: start: 20161114, end: 20161114
  7. GLIVEC [Suspect]
     Active Substance: IMATINIB MESYLATE
     Indication: ACUTE LYMPHOCYTIC LEUKAEMIA
     Dosage: CUMULATIVE DOSE: 7650 MG
     Route: 048
     Dates: start: 20150921, end: 20170307
  8. METHOTREXATE. [Suspect]
     Active Substance: METHOTREXATE
     Indication: ACUTE LYMPHOCYTIC LEUKAEMIA
     Route: 048
     Dates: start: 20160913
  9. DOXORUBICIN HYDROCHLORIDE. [Suspect]
     Active Substance: DOXORUBICIN HYDROCHLORIDE
     Indication: PHILADELPHIA CHROMOSOME POSITIVE
     Route: 042
     Dates: start: 20160627
  10. ASPARAGINASE [Suspect]
     Active Substance: ASPARAGINASE
     Indication: PHILADELPHIA CHROMOSOME POSITIVE
     Route: 042
     Dates: start: 20160303
  11. ASPARAGINASE [Suspect]
     Active Substance: ASPARAGINASE
     Indication: ACUTE LYMPHOCYTIC LEUKAEMIA
     Route: 042
     Dates: start: 20160620
  12. VINCRISTINE [Suspect]
     Active Substance: VINCRISTINE
     Indication: ACUTE LYMPHOCYTIC LEUKAEMIA
     Route: 042
     Dates: start: 20151223, end: 20151223
  13. VINCRISTINE [Suspect]
     Active Substance: VINCRISTINE
     Indication: PHILADELPHIA CHROMOSOME POSITIVE
     Route: 042
     Dates: start: 20160620
  14. VINDESINE [Suspect]
     Active Substance: VINDESINE
     Indication: ACUTE LYMPHOCYTIC LEUKAEMIA
     Route: 042
     Dates: start: 20160114
  15. DOXORUBICIN HYDROCHLORIDE. [Suspect]
     Active Substance: DOXORUBICIN HYDROCHLORIDE
     Indication: ACUTE LYMPHOCYTIC LEUKAEMIA
     Route: 042
     Dates: start: 20160303
  16. DOXORUBICIN HYDROCHLORIDE. [Suspect]
     Active Substance: DOXORUBICIN HYDROCHLORIDE
     Indication: PHILADELPHIA CHROMOSOME POSITIVE
     Route: 042
     Dates: start: 20160324
  17. DOXORUBICIN HYDROCHLORIDE. [Suspect]
     Active Substance: DOXORUBICIN HYDROCHLORIDE
     Indication: PHILADELPHIA CHROMOSOME POSITIVE
     Route: 042
     Dates: start: 20160704
  18. CYCLOPHOSPHAMIDE. [Suspect]
     Active Substance: CYCLOPHOSPHAMIDE
     Indication: ACUTE LYMPHOCYTIC LEUKAEMIA
     Route: 042
     Dates: start: 20160730, end: 20160730
  19. ASPARAGINASE [Suspect]
     Active Substance: ASPARAGINASE
     Indication: ACUTE LYMPHOCYTIC LEUKAEMIA
     Route: 042
     Dates: start: 20160209, end: 20160209
  20. ASPARAGINASE [Suspect]
     Active Substance: ASPARAGINASE
     Indication: ACUTE LYMPHOCYTIC LEUKAEMIA
     Route: 042
     Dates: start: 20160310
  21. ASPARAGINASE [Suspect]
     Active Substance: ASPARAGINASE
     Indication: PHILADELPHIA CHROMOSOME POSITIVE
     Route: 042
     Dates: start: 20160630
  22. VINCRISTINE [Suspect]
     Active Substance: VINCRISTINE
     Indication: ACUTE LYMPHOCYTIC LEUKAEMIA
     Route: 042
     Dates: start: 20160303, end: 20160303
  23. VINCRISTINE [Suspect]
     Active Substance: VINCRISTINE
     Indication: PHILADELPHIA CHROMOSOME POSITIVE
     Route: 042
     Dates: start: 20160324
  24. VINCRISTINE [Suspect]
     Active Substance: VINCRISTINE
     Indication: ACUTE LYMPHOCYTIC LEUKAEMIA
     Route: 042
     Dates: start: 20160712, end: 20160712
  25. VINDESINE [Suspect]
     Active Substance: VINDESINE
     Indication: PHILADELPHIA CHROMOSOME POSITIVE
     Route: 042
     Dates: start: 20160114
  26. VINDESINE [Suspect]
     Active Substance: VINDESINE
     Indication: ACUTE LYMPHOCYTIC LEUKAEMIA
     Route: 042
     Dates: start: 20160119, end: 20160119
  27. MERCAPTOPURINE. [Suspect]
     Active Substance: MERCAPTOPURINE
     Indication: PRODUCT USED FOR UNKNOWN INDICATION
     Route: 048
     Dates: start: 20160913
  28. DOXORUBICIN HYDROCHLORIDE. [Suspect]
     Active Substance: DOXORUBICIN HYDROCHLORIDE
     Indication: ACUTE LYMPHOCYTIC LEUKAEMIA
     Route: 042
     Dates: start: 20160712
  29. DOXORUBICIN HYDROCHLORIDE. [Suspect]
     Active Substance: DOXORUBICIN HYDROCHLORIDE
     Indication: ACUTE LYMPHOCYTIC LEUKAEMIA
     Route: 042
     Dates: start: 2016, end: 20160712
  30. CYCLOPHOSPHAMIDE. [Suspect]
     Active Substance: CYCLOPHOSPHAMIDE
     Indication: PHILADELPHIA CHROMOSOME POSITIVE
     Route: 042
     Dates: start: 20160416, end: 20160416
  31. ASPARAGINASE [Suspect]
     Active Substance: ASPARAGINASE
     Indication: ACUTE LYMPHOCYTIC LEUKAEMIA
     Route: 042
     Dates: start: 20160627
  32. VINCRISTINE [Suspect]
     Active Substance: VINCRISTINE
     Indication: PHILADELPHIA CHROMOSOME POSITIVE
     Route: 042
     Dates: start: 20151223, end: 20151223
  33. VINCRISTINE [Suspect]
     Active Substance: VINCRISTINE
     Indication: ACUTE LYMPHOCYTIC LEUKAEMIA
     Route: 042
     Dates: start: 20160324
  34. VINCRISTINE [Suspect]
     Active Substance: VINCRISTINE
     Indication: PHILADELPHIA CHROMOSOME POSITIVE
     Route: 042
     Dates: start: 20160119, end: 20160119
  35. VINCRISTINE [Suspect]
     Active Substance: VINCRISTINE
     Indication: ACUTE LYMPHOCYTIC LEUKAEMIA
     Route: 042
     Dates: start: 20161109, end: 20161109
  36. CYTARABINE. [Suspect]
     Active Substance: CYTARABINE
     Indication: ACUTE LYMPHOCYTIC LEUKAEMIA
     Route: 042
     Dates: start: 20160811
  37. DOXORUBICIN HYDROCHLORIDE. [Suspect]
     Active Substance: DOXORUBICIN HYDROCHLORIDE
     Indication: ACUTE LYMPHOCYTIC LEUKAEMIA
     Route: 042
     Dates: start: 20160620
  38. ASPARAGINASE [Suspect]
     Active Substance: ASPARAGINASE
     Indication: ACUTE LYMPHOCYTIC LEUKAEMIA
     Route: 042
     Dates: start: 20160306
  39. ASPARAGINASE [Suspect]
     Active Substance: ASPARAGINASE
     Indication: ACUTE LYMPHOCYTIC LEUKAEMIA
     Route: 042
     Dates: start: 20160630
  40. VINCRISTINE [Suspect]
     Active Substance: VINCRISTINE
     Indication: ACUTE LYMPHOCYTIC LEUKAEMIA
     Route: 042
     Dates: start: 20160620
  41. VINCRISTINE [Suspect]
     Active Substance: VINCRISTINE
     Indication: PHILADELPHIA CHROMOSOME POSITIVE
     Route: 042
     Dates: start: 20160704
  42. VINCRISTINE [Suspect]
     Active Substance: VINCRISTINE
     Indication: ACUTE LYMPHOCYTIC LEUKAEMIA
     Route: 042
     Dates: start: 20160704
  43. VINCRISTINE [Suspect]
     Active Substance: VINCRISTINE
     Indication: ACUTE LYMPHOCYTIC LEUKAEMIA
     Route: 042
     Dates: start: 20160119, end: 20160119
  44. DOXORUBICIN HYDROCHLORIDE. [Suspect]
     Active Substance: DOXORUBICIN HYDROCHLORIDE
     Indication: ACUTE LYMPHOCYTIC LEUKAEMIA
     Route: 042
     Dates: start: 20160324
  45. DOXORUBICIN HYDROCHLORIDE. [Suspect]
     Active Substance: DOXORUBICIN HYDROCHLORIDE
     Indication: ACUTE LYMPHOCYTIC LEUKAEMIA
     Route: 042
     Dates: start: 20160627
  46. CYCLOPHOSPHAMIDE. [Suspect]
     Active Substance: CYCLOPHOSPHAMIDE
     Indication: ACUTE LYMPHOCYTIC LEUKAEMIA
     Route: 042
     Dates: start: 20160416, end: 20160416
  47. CYCLOPHOSPHAMIDE. [Suspect]
     Active Substance: CYCLOPHOSPHAMIDE
     Indication: PHILADELPHIA CHROMOSOME POSITIVE
     Route: 042
     Dates: start: 20160730, end: 20160730
  48. DAUNORUBICIN [Suspect]
     Active Substance: DAUNORUBICIN
     Indication: ACUTE LYMPHOCYTIC LEUKAEMIA
     Route: 042
     Dates: start: 20160118, end: 20160119
  49. ASPARAGINASE [Suspect]
     Active Substance: ASPARAGINASE
     Indication: PHILADELPHIA CHROMOSOME POSITIVE
     Route: 042
     Dates: start: 20160313
  50. VINCRISTINE [Suspect]
     Active Substance: VINCRISTINE
     Indication: PHILADELPHIA CHROMOSOME POSITIVE
     Route: 042
     Dates: start: 20160310
  51. GLIVEC [Suspect]
     Active Substance: IMATINIB MESYLATE
     Indication: PHILADELPHIA CHROMOSOME POSITIVE
     Dosage: CUMULATIVE DOSE: 7650 MG
     Route: 048
     Dates: start: 20150921, end: 20170307
  52. METHOTREXATE. [Suspect]
     Active Substance: METHOTREXATE
     Indication: PHILADELPHIA CHROMOSOME POSITIVE
     Route: 048
     Dates: start: 20160913
  53. CYTARABINE. [Suspect]
     Active Substance: CYTARABINE
     Indication: PHILADELPHIA CHROMOSOME POSITIVE
     Route: 042
     Dates: start: 20160811
  54. METHOTREXATE. [Suspect]
     Active Substance: METHOTREXATE
     Indication: PRODUCT USED FOR UNKNOWN INDICATION
     Dosage: REGULARLY APPLICATION VIA THERAPY ELEMENT HR3, CUMULATIVE DOSE: 105300 MG
     Route: 037
     Dates: start: 20160228
  55. DOXORUBICIN HYDROCHLORIDE. [Suspect]
     Active Substance: DOXORUBICIN HYDROCHLORIDE
     Indication: PHILADELPHIA CHROMOSOME POSITIVE
     Route: 042
     Dates: start: 20160303
  56. DOXORUBICIN HYDROCHLORIDE. [Suspect]
     Active Substance: DOXORUBICIN HYDROCHLORIDE
     Indication: PHILADELPHIA CHROMOSOME POSITIVE
     Route: 042
     Dates: start: 20160310
  57. DOXORUBICIN HYDROCHLORIDE. [Suspect]
     Active Substance: DOXORUBICIN HYDROCHLORIDE
     Indication: PHILADELPHIA CHROMOSOME POSITIVE
     Route: 042
     Dates: start: 20160620
  58. DOXORUBICIN HYDROCHLORIDE. [Suspect]
     Active Substance: DOXORUBICIN HYDROCHLORIDE
     Indication: PHILADELPHIA CHROMOSOME POSITIVE
     Route: 042
     Dates: start: 20160712
  59. DOXORUBICIN HYDROCHLORIDE. [Suspect]
     Active Substance: DOXORUBICIN HYDROCHLORIDE
     Indication: PHILADELPHIA CHROMOSOME POSITIVE
     Route: 042
     Dates: start: 2016, end: 20160712
  60. ASPARAGINASE [Suspect]
     Active Substance: ASPARAGINASE
     Indication: PHILADELPHIA CHROMOSOME POSITIVE
     Route: 042
     Dates: start: 20160209, end: 20160209
  61. ASPARAGINASE [Suspect]
     Active Substance: ASPARAGINASE
     Indication: ACUTE LYMPHOCYTIC LEUKAEMIA
     Route: 042
     Dates: start: 20160303
  62. ASPARAGINASE [Suspect]
     Active Substance: ASPARAGINASE
     Indication: PHILADELPHIA CHROMOSOME POSITIVE
     Route: 042
     Dates: start: 20160306
  63. ASPARAGINASE [Suspect]
     Active Substance: ASPARAGINASE
     Indication: PHILADELPHIA CHROMOSOME POSITIVE
     Route: 042
     Dates: start: 20160310
  64. ASPARAGINASE [Suspect]
     Active Substance: ASPARAGINASE
     Indication: ACUTE LYMPHOCYTIC LEUKAEMIA
     Route: 042
     Dates: start: 20160313
  65. VINCRISTINE [Suspect]
     Active Substance: VINCRISTINE
     Indication: ACUTE LYMPHOCYTIC LEUKAEMIA
     Route: 042
     Dates: start: 20151218
  66. VINCRISTINE [Suspect]
     Active Substance: VINCRISTINE
     Indication: ACUTE LYMPHOCYTIC LEUKAEMIA
     Route: 042
     Dates: start: 20160317
  67. VINCRISTINE [Suspect]
     Active Substance: VINCRISTINE
     Indication: ACUTE LYMPHOCYTIC LEUKAEMIA
     Route: 042
     Dates: start: 20161114, end: 20161114
  68. GLIVEC [Suspect]
     Active Substance: IMATINIB MESYLATE
     Indication: SYSTEMIC SCLERODERMA
     Dosage: CUMULATIVE DOSE: 7650 MG
     Route: 048
     Dates: start: 20150921, end: 20170307
  69. DOXORUBICIN HYDROCHLORIDE. [Suspect]
     Active Substance: DOXORUBICIN HYDROCHLORIDE
     Indication: ACUTE LYMPHOCYTIC LEUKAEMIA
     Route: 042
     Dates: start: 20160704
  70. ASPARAGINASE [Suspect]
     Active Substance: ASPARAGINASE
     Indication: PHILADELPHIA CHROMOSOME POSITIVE
     Route: 042
     Dates: start: 20160620
  71. ASPARAGINASE [Suspect]
     Active Substance: ASPARAGINASE
     Indication: PHILADELPHIA CHROMOSOME POSITIVE
     Route: 042
     Dates: start: 20160627
  72. VINCRISTINE [Suspect]
     Active Substance: VINCRISTINE
     Indication: PHILADELPHIA CHROMOSOME POSITIVE
     Route: 042
     Dates: start: 20160303, end: 20160303
  73. VINCRISTINE [Suspect]
     Active Substance: VINCRISTINE
     Indication: ACUTE LYMPHOCYTIC LEUKAEMIA
     Route: 042
     Dates: start: 20160310
  74. VINCRISTINE [Suspect]
     Active Substance: VINCRISTINE
     Indication: PHILADELPHIA CHROMOSOME POSITIVE
     Route: 042
     Dates: start: 20160627
  75. VINCRISTINE [Suspect]
     Active Substance: VINCRISTINE
     Indication: ACUTE LYMPHOCYTIC LEUKAEMIA
     Route: 042
     Dates: start: 20160627
  76. VINCRISTINE [Suspect]
     Active Substance: VINCRISTINE
     Indication: PHILADELPHIA CHROMOSOME POSITIVE
     Route: 042
     Dates: start: 20161109, end: 20161109
  77. VINDESINE [Suspect]
     Active Substance: VINDESINE
     Indication: PHILADELPHIA CHROMOSOME POSITIVE
     Route: 042
     Dates: start: 20160119, end: 20160119

REACTIONS (11)
  - Pruritus [Unknown]
  - Stomatitis [Unknown]
  - Febrile neutropenia [Recovered/Resolved]
  - Product use in unapproved indication [Unknown]
  - Upper respiratory tract infection [Recovered/Resolved]
  - Neutropenia [Recovered/Resolved]
  - Pyrexia [Recovered/Resolved]
  - Muscular weakness [Unknown]
  - Infectious colitis [Unknown]
  - Lymphopenia [Unknown]
  - Off label use [Unknown]

NARRATIVE: CASE EVENT DATE: 20160303
